FAERS Safety Report 22851770 (Version 3)
Quarter: 2023Q4

REPORT INFORMATION
  Report Type: Spontaneous
  Country: US (occurrence: US)
  Receive Date: 20230823
  Receipt Date: 20231025
  Transmission Date: 20240110
  Serious: Yes (Hospitalization)
  Sender: FDA-Public Use
  Company Number: US-CIPLA LTD.-2023US04947

PATIENT

DRUGS (4)
  1. ALBUTEROL [Suspect]
     Active Substance: ALBUTEROL
     Indication: Asthma
     Dosage: 90 MCG, QID
     Route: 065
     Dates: start: 2020
  2. ATORVASTATIN [Concomitant]
     Active Substance: ATORVASTATIN
     Indication: Blood cholesterol
     Dosage: 20 MILLIGRAM, QD (1 TABLET/ONCE A DAY)
     Route: 065
     Dates: start: 2016
  3. CITALOPRAM [Concomitant]
     Active Substance: CITALOPRAM HYDROBROMIDE
     Indication: Depression
     Dosage: 20 MILLIGRAM, QD (1 TABLET/ONCE A DAY)
     Route: 065
     Dates: start: 2021
  4. HYDROXYZINE [Concomitant]
     Active Substance: HYDROXYZINE HYDROCHLORIDE
     Indication: Anxiety
     Dosage: 50 MILLIGRAM, QD (1 TABLET/ONCE A DAY)
     Route: 065
     Dates: start: 2006

REACTIONS (11)
  - White blood cell count decreased [Unknown]
  - Illness [Unknown]
  - Dyspnoea [Unknown]
  - Chest pain [Unknown]
  - Respiratory rate increased [Unknown]
  - Heart rate decreased [Unknown]
  - Drug ineffective [Unknown]
  - Cardiac disorder [Unknown]
  - Feeling abnormal [Unknown]
  - Product substitution issue [Unknown]
  - Device delivery system issue [Unknown]
